FAERS Safety Report 8256862-3 (Version None)
Quarter: 2012Q2

REPORT INFORMATION
  Report Type: 
  Country: None (occurrence: None)
  Receive Date: 20120403
  Receipt Date: 20120326
  Transmission Date: 20120825
  Serious: Yes (Other)
  Sender: FDA-Public Use
  Company Number: US-PFIZER INC-2012047408

PATIENT
  Sex: Female

DRUGS (2)
  1. REVATIO [Suspect]
     Indication: PULMONARY HYPERTENSION
     Dosage: UNK
     Dates: end: 20120101
  2. REVATIO [Suspect]
     Indication: SYSTEMIC SCLEROSIS

REACTIONS (3)
  - RASH GENERALISED [None]
  - DRUG HYPERSENSITIVITY [None]
  - DRUG ERUPTION [None]
